FAERS Safety Report 11209542 (Version 20)
Quarter: 2019Q3

REPORT INFORMATION
  Report Type: Report from Study
  Country: CO (occurrence: CO)
  Receive Date: 20150622
  Receipt Date: 20190816
  Transmission Date: 20191004
  Serious: Yes (Life-Threatening, Other)
  Sender: FDA-Public Use
  Company Number: PHHY2015CO073689

PATIENT
  Age: 41 Year
  Sex: Male
  Weight: 51 kg

DRUGS (10)
  1. TASIGNA [Suspect]
     Active Substance: NILOTINIB
     Indication: CHRONIC MYELOID LEUKAEMIA
     Dosage: 300 MG, BID (ONE DURING THE DAY AND ONE AT NIGHT)
     Route: 065
     Dates: start: 2011
  2. TASIGNA [Suspect]
     Active Substance: NILOTINIB
     Dosage: 200 MG, QID (4 TIMES A DAY)
     Route: 048
     Dates: start: 20120301
  3. TASIGNA [Suspect]
     Active Substance: NILOTINIB
     Dosage: 200 MG, UNK
     Route: 048
  4. TASIGNA [Suspect]
     Active Substance: NILOTINIB
     Dosage: UNK, Q12H
     Route: 048
     Dates: start: 201202
  5. MORPHINE [Concomitant]
     Active Substance: MORPHINE
     Indication: PRODUCT USED FOR UNKNOWN INDICATION
     Dosage: UNK
     Route: 065
  6. TASIGNA [Suspect]
     Active Substance: NILOTINIB
     Dosage: 400 MG, BID
     Route: 048
     Dates: start: 201208, end: 201608
  7. TASIGNA [Suspect]
     Active Substance: NILOTINIB
     Dosage: 150 MG, UNK
     Route: 048
  8. TASIGNA [Suspect]
     Active Substance: NILOTINIB
     Dosage: 800 MG, QD
     Route: 048
  9. TASIGNA [Suspect]
     Active Substance: NILOTINIB
     Dosage: 800 MG, QD
     Route: 048
     Dates: start: 20120210
  10. HYDROCODONE BITARTRATE AND ACETAMINOPHEN [Concomitant]
     Active Substance: ACETAMINOPHEN\HYDROCODONE BITARTRATE
     Indication: PRODUCT USED FOR UNKNOWN INDICATION
     Dosage: 325 MG, EVERY 6 HOURS FOR 180 DAYS

REACTIONS (39)
  - Gait disturbance [Not Recovered/Not Resolved]
  - Abdominal pain [Unknown]
  - Muscular weakness [Unknown]
  - Fall [Unknown]
  - Hand fracture [Unknown]
  - Chronic myeloid leukaemia recurrent [Unknown]
  - Inflammation [Unknown]
  - Platelet count abnormal [Unknown]
  - Weight decreased [Unknown]
  - Aneurysm [Unknown]
  - Gait inability [Unknown]
  - Pain [Unknown]
  - Peripheral swelling [Unknown]
  - Apathy [Unknown]
  - Dysstasia [Unknown]
  - Joint stiffness [Unknown]
  - Inappropriate schedule of product administration [Unknown]
  - Haemorrhage [Unknown]
  - Musculoskeletal pain [Unknown]
  - Malaise [Unknown]
  - Diarrhoea [Unknown]
  - Muscle spasms [Unknown]
  - Asthenia [Unknown]
  - Apparent death [Unknown]
  - Syncope [Unknown]
  - Viral infection [Unknown]
  - Depressed mood [Unknown]
  - Headache [Unknown]
  - Abdominal pain upper [Unknown]
  - Insomnia [Unknown]
  - Arthralgia [Unknown]
  - Blood disorder [Unknown]
  - General physical health deterioration [Unknown]
  - Pain in extremity [Not Recovered/Not Resolved]
  - Dizziness [Unknown]
  - Rectal haemorrhage [Unknown]
  - Bone pain [Unknown]
  - Epistaxis [Unknown]
  - Vomiting [Unknown]

NARRATIVE: CASE EVENT DATE: 20161116
